FAERS Safety Report 4521324-3 (Version None)
Quarter: 2004Q4

REPORT INFORMATION
  Report Type: 
  Country: None (occurrence: None)
  Receive Date: 20041208
  Receipt Date: 20041201
  Transmission Date: 20050328
  Serious: Yes (Hospitalization)
  Sender: FDA-Public Use
  Company Number: PHRM2004DZ03509

PATIENT
  Age: 26 Year
  Sex: Male

DRUGS (1)
  1. FORADIL [Suspect]
     Dosage: ONCE/SINGLE

REACTIONS (4)
  - BRADYCARDIA [None]
  - CONVULSION [None]
  - HYPERHIDROSIS [None]
  - SHOCK HYPOGLYCAEMIC [None]
